FAERS Safety Report 8330146-7 (Version None)
Quarter: 2012Q2

REPORT INFORMATION
  Report Type: 
  Country: None (occurrence: None)
  Receive Date: 20120502
  Receipt Date: 20100201
  Transmission Date: 20120825
  Serious: No
  Sender: FDA-Public Use
  Company Number: US-TEVA-2010000596

PATIENT
  Sex: Male
  Weight: 68.1 kg

DRUGS (4)
  1. VICODIN [Concomitant]
     Indication: PAIN IN EXTREMITY
     Dates: start: 20090101
  2. CARBATROL [Concomitant]
     Indication: FIBROMYALGIA
     Dosage: 600 MILLIGRAM;
     Route: 048
     Dates: start: 20090101
  3. IBUPROFEN [Concomitant]
     Indication: PAIN
     Route: 048
  4. NUVIGIL [Suspect]
     Indication: FATIGUE MANAGEMENT
     Dosage: 150 MILLIGRAM;
     Route: 048
     Dates: start: 20100130, end: 20100201

REACTIONS (1)
  - GAIT DISTURBANCE [None]
